FAERS Safety Report 4307649-5 (Version None)
Quarter: 2004Q1

REPORT INFORMATION
  Report Type: 
  Country: None (occurrence: None)
  Receive Date: 20040225
  Receipt Date: 20030617
  Transmission Date: 20041129
  Serious: Yes (Disabling)
  Sender: FDA-Public Use
  Company Number: WAES 0307USA00580

PATIENT
  Age: 79 Year
  Sex: Male
  Weight: 73.4827 kg

DRUGS (9)
  1. ZOCOR [Suspect]
     Indication: BLOOD CHOLESTEROL INCREASED
     Dosage: 40 MG/DAILY/PO; 80 MG/DAILY/PO
     Route: 048
     Dates: start: 20020117, end: 20020915
  2. ZOCOR [Suspect]
     Indication: BLOOD CHOLESTEROL INCREASED
     Dosage: 40 MG/DAILY/PO; 80 MG/DAILY/PO
     Route: 048
     Dates: start: 20020915, end: 20021021
  3. . [Concomitant]
  4. LOPID [Suspect]
     Dosage: 600 MG/BID
     Dates: start: 20020901, end: 20021021
  5. HYDRODIURIL [Concomitant]
  6. LANOXIN [Concomitant]
  7. FELODIPINE [Concomitant]
  8. POTASSIUM (UNSPECIFIED) [Concomitant]
  9. TERAZOSIN HYDROCHLORIDE [Concomitant]

REACTIONS (1)
  - RHABDOMYOLYSIS [None]
